FAERS Safety Report 25402639 (Version 2)
Quarter: 2025Q3

REPORT INFORMATION
  Report Type: Spontaneous
  Country: US (occurrence: US)
  Receive Date: 20250605
  Receipt Date: 20250707
  Transmission Date: 20251021
  Serious: Yes (Other)
  Sender: BIOGEN
  Company Number: US-BIOGEN-2025BI01311109

PATIENT
  Sex: Male

DRUGS (2)
  1. SKYCLARYS [Suspect]
     Active Substance: OMAVELOXOLONE
     Indication: Friedreich^s ataxia
     Route: 050
     Dates: start: 20250212
  2. SKYCLARYS [Suspect]
     Active Substance: OMAVELOXOLONE
     Route: 050
     Dates: start: 20250212

REACTIONS (7)
  - Hereditary ataxia [Unknown]
  - Musculoskeletal discomfort [Unknown]
  - Laboratory test abnormal [Unknown]
  - Asthenia [Unknown]
  - Bone deformity [Unknown]
  - Dermatitis allergic [Unknown]
  - Back pain [Unknown]
